FAERS Safety Report 8956750 (Version 1)
Quarter: 2012Q4

REPORT INFORMATION
  Report Type: Report from Study
  Country: SE (occurrence: SE)
  Receive Date: 20121210
  Receipt Date: 20121210
  Transmission Date: 20130627
  Serious: Yes (Hospitalization)
  Sender: FDA-Public Use
  Company Number: SE-ROCHE-766513

PATIENT
  Age: 73 Year
  Sex: Male

DRUGS (33)
  1. ALEGLITAZAR [Suspect]
     Indication: CARDIOVASCULAR EVENT PROPHYLAXIS
     Dosage: LAST DOSE PRIOR TO SAE: 12/Oct/2011
     Route: 048
  2. MESALAZINE [Concomitant]
     Route: 065
     Dates: start: 20060301, end: 20111005
  3. MESALAZINE [Concomitant]
     Route: 065
  4. NOVOMIX [Concomitant]
     Dosage: TOTAL DAILY DOSE REPORTED AS 24 UNITS TWICE A DAY
     Route: 065
     Dates: start: 20090301, end: 20110125
  5. NOVOMIX [Concomitant]
     Dosage: 22 UNITS
     Route: 065
  6. NOVOMIX [Concomitant]
     Dosage: 6 units
     Route: 065
  7. CLOPIDOGREL [Concomitant]
     Route: 065
     Dates: start: 20100815, end: 20110906
  8. METOPROLOL [Concomitant]
     Route: 065
     Dates: start: 20100814, end: 20101015
  9. METOPROLOL [Concomitant]
     Route: 065
  10. ENALAPRIL [Concomitant]
     Route: 065
     Dates: start: 20100601, end: 20101001
  11. ENALAPRIL [Concomitant]
     Route: 065
     Dates: start: 20101002, end: 20120307
  12. SIMVASTATIN [Concomitant]
     Route: 065
     Dates: start: 20100814, end: 20110111
  13. SIMVASTATIN [Concomitant]
     Route: 065
     Dates: start: 20110125, end: 20120301
  14. SIMVASTATIN [Concomitant]
     Route: 065
  15. NITROGLYCERINE [Concomitant]
     Route: 065
  16. AMOXICILLIN [Concomitant]
     Route: 065
     Dates: start: 20110111, end: 20110125
  17. AMOXICILLIN [Concomitant]
     Route: 065
     Dates: start: 20110109, end: 20110116
  18. ESOMEPRAZOLE [Concomitant]
     Route: 065
  19. ESOMEPRAZOLE [Concomitant]
     Route: 065
     Dates: start: 20110109, end: 20110116
  20. KLARITROMYCIN [Concomitant]
     Route: 065
     Dates: start: 20110111, end: 20110125
  21. KLARITROMYCIN [Concomitant]
     Route: 065
     Dates: start: 20110109, end: 20110116
  22. OMEPRAZOLE [Concomitant]
     Route: 065
     Dates: start: 20110117, end: 20110315
  23. OMEPRAZOLE [Concomitant]
     Route: 065
     Dates: start: 20110315, end: 20110926
  24. OMEPRAZOLE [Concomitant]
     Route: 065
     Dates: start: 20110927
  25. ALLOPURINOL [Concomitant]
     Route: 065
     Dates: start: 20110125
  26. CANDESARTAN [Concomitant]
     Route: 065
     Dates: start: 20120308
  27. AMLODIPINE [Concomitant]
     Route: 065
     Dates: start: 20120823
  28. KALCIUMKARBONAT [Concomitant]
     Route: 065
     Dates: start: 20110926
  29. METFORMIN [Concomitant]
     Route: 065
     Dates: start: 20121026
  30. METFORMIN [Concomitant]
     Route: 065
     Dates: start: 20121018, end: 20121025
  31. IRON [Concomitant]
     Route: 065
     Dates: start: 20111005
  32. INSULIN ASPART [Concomitant]
     Dosage: 4 units
     Route: 065
     Dates: start: 20111005
  33. ASA [Concomitant]
     Route: 065
     Dates: start: 20100815

REACTIONS (3)
  - Gastric ulcer [Recovering/Resolving]
  - Dizziness [Recovered/Resolved]
  - Colitis ulcerative [Recovering/Resolving]
